FAERS Safety Report 18052726 (Version 2)
Quarter: 2020Q4

REPORT INFORMATION
  Report Type: Spontaneous
  Country: DE (occurrence: DE)
  Receive Date: 20200721
  Receipt Date: 20201020
  Transmission Date: 20210113
  Serious: Yes (Other)
  Sender: FDA-Public Use
  Company Number: DE-AMGEN-DEUSP2020116780

PATIENT
  Sex: Female

DRUGS (2)
  1. AIMOVIG [Suspect]
     Active Substance: ERENUMAB-AOOE
     Indication: MIGRAINE
     Dosage: 70 MG
     Route: 065
     Dates: start: 2019
  2. MINI-PILL [Concomitant]
     Active Substance: NORETHINDRONE
     Indication: CONTRACEPTION
     Dosage: UNK
     Route: 065

REACTIONS (8)
  - Fatigue [Recovered/Resolved]
  - Circulatory collapse [Recovered/Resolved]
  - Vaginal haemorrhage [Recovered/Resolved]
  - Migraine [Not Recovered/Not Resolved]
  - Abdominal pain upper [Recovered/Resolved]
  - Back pain [Recovered/Resolved]
  - Pain [Recovered/Resolved]
  - Sleep disorder [Recovered/Resolved]
